FAERS Safety Report 19268108 (Version 1)
Quarter: 2021Q2

REPORT INFORMATION
  Report Type: Spontaneous
  Country: US (occurrence: US)
  Receive Date: 20210517
  Receipt Date: 20210517
  Transmission Date: 20210717
  Serious: No
  Sender: FDA-Public Use
  Company Number: US-GLAXOSMITHKLINE-US2021AMR101217

PATIENT
  Age: 43 Year
  Sex: Female
  Weight: 74.84 kg

DRUGS (5)
  1. PFIZER?BIONTECH COVID?19 VACCINE [Suspect]
     Active Substance: TOZINAMERAN
     Indication: COVID-19
     Dosage: UNK
     Dates: start: 20210318
  2. HUMIRA [Suspect]
     Active Substance: ADALIMUMAB
     Indication: CROHN^S DISEASE
     Dosage: 40 MG, WE
     Route: 042
     Dates: start: 202002
  3. AZITHROMYCIN 250 [Suspect]
     Active Substance: AZITHROMYCIN ANHYDROUS
     Indication: PRODUCT USED FOR UNKNOWN INDICATION
     Dosage: UNK UNK, QD(250 MG)
  4. ALBUTEROL SULFATE. [Suspect]
     Active Substance: ALBUTEROL SULFATE
     Indication: DYSPNOEA
     Dosage: UNK(90 MCG, 18G/200 METERED)
  5. RESTASIS [Suspect]
     Active Substance: CYCLOSPORINE
     Indication: DRY EYE
     Dosage: UNK
     Dates: start: 20210319

REACTIONS (11)
  - Dry eye [Unknown]
  - Cough [Not Recovered/Not Resolved]
  - Drug ineffective [Unknown]
  - Inappropriate schedule of product administration [Unknown]
  - Chest discomfort [Not Recovered/Not Resolved]
  - Feeling abnormal [Unknown]
  - Dyspnoea [Not Recovered/Not Resolved]
  - Instillation site warmth [Recovered/Resolved]
  - Dizziness [Recovering/Resolving]
  - Dysphonia [Not Recovered/Not Resolved]
  - Palpitations [Unknown]

NARRATIVE: CASE EVENT DATE: 2021
